FAERS Safety Report 8600275-9 (Version None)
Quarter: 2012Q3

REPORT INFORMATION
  Report Type: 
  Country: None (occurrence: None)
  Receive Date: 20120817
  Receipt Date: 20120810
  Transmission Date: 20120928
  Serious: No
  Sender: FDA-Public Use
  Company Number: US-BIOGENIDEC-2012BI031139

PATIENT
  Sex: Female

DRUGS (2)
  1. TYSABRI [Suspect]
     Indication: MULTIPLE SCLEROSIS
     Route: 042
     Dates: start: 20080715, end: 20100517
  2. TYSABRI [Suspect]
     Route: 042
     Dates: start: 20110303

REACTIONS (3)
  - PAIN [None]
  - WEIGHT INCREASED [None]
  - ARTHRALGIA [None]
